FAERS Safety Report 7249464-9 (Version None)
Quarter: 2011Q1

REPORT INFORMATION
  Report Type: 
  Country: None (occurrence: None)
  Receive Date: 20110128
  Receipt Date: 20101207
  Transmission Date: 20110831
  Serious: Yes (Hospitalization, Other)
  Sender: FDA-Public Use
  Company Number: US-BAYER-201016082NA

PATIENT
  Sex: Female
  Weight: 100 kg

DRUGS (8)
  1. YASMIN [Suspect]
     Indication: PREMENSTRUAL SYNDROME
     Route: 048
     Dates: start: 20010101, end: 20040501
  2. ADVIL [Concomitant]
     Indication: MYALGIA
  3. YAZ [Suspect]
     Route: 048
  4. MOTRIN [Concomitant]
     Indication: MYALGIA
  5. PREVACID [Concomitant]
     Indication: GASTROOESOPHAGEAL REFLUX DISEASE
     Dosage: 30 MG, QD
     Dates: start: 20040421
  6. YASMIN [Suspect]
     Indication: ORAL CONTRACEPTION
     Dosage: UNK
     Route: 048
     Dates: start: 19990101, end: 20040501
  7. BEXTRA [Concomitant]
     Dosage: UNK
     Route: 048
     Dates: start: 20040401
  8. VALTREX [Concomitant]
     Dosage: UNK
     Route: 048
     Dates: start: 20040421

REACTIONS (11)
  - PULMONARY EMBOLISM [None]
  - HEADACHE [None]
  - DYSPNOEA [None]
  - MUSCLE SPASMS [None]
  - MUSCULOSKELETAL PAIN [None]
  - SINUS TACHYCARDIA [None]
  - PLEURAL EFFUSION [None]
  - MYALGIA [None]
  - DEEP VEIN THROMBOSIS [None]
  - CHEST PAIN [None]
  - ATELECTASIS [None]
